FAERS Safety Report 7222848-0 (Version None)
Quarter: 2011Q1

REPORT INFORMATION
  Report Type: 
  Country: None (occurrence: None)
  Receive Date: 20110106
  Receipt Date: 20110106
  Transmission Date: 20110831
  Serious: Yes (Life-Threatening, Hospitalization)
  Sender: FDA-Public Use
  Company Number: None

PATIENT
  Sex: Female
  Weight: 50.8029 kg

DRUGS (1)
  1. DARVOCET [Suspect]
     Indication: BONE PAIN
     Dosage: 1 EVERY 4-6 HRS.
     Dates: start: 19960101, end: 20100101

REACTIONS (2)
  - FALL [None]
  - BONE PAIN [None]
